FAERS Safety Report 5087015-8 (Version None)
Quarter: 2006Q3

REPORT INFORMATION
  Report Type: 
  Country: None (occurrence: None)
  Receive Date: 20060821
  Receipt Date: 20060804
  Transmission Date: 20061208
  Serious: Yes (Hospitalization, Disabling, Other)
  Sender: FDA-Public Use
  Company Number: PAR_0728_2006

PATIENT
  Age: 77 Year
  Sex: Female

DRUGS (7)
  1. CITALOPRAM HYDROBROMIDE [Suspect]
     Indication: DEPRESSIVE SYMPTOM
     Dosage: 10 MG QDAY PO
     Route: 048
  2. DIGOXIN [Concomitant]
  3. ENALAPRIL [Concomitant]
  4. SIMVASTATIN [Concomitant]
  5. PENMIX [Concomitant]
  6. ASPIRIN [Concomitant]
  7. CEFUROXIME [Concomitant]

REACTIONS (12)
  - BRADYKINESIA [None]
  - CEREBRAL ATROPHY [None]
  - CEREBRAL INFARCTION [None]
  - DELIRIUM [None]
  - DRUG INEFFECTIVE [None]
  - DYSPHAGIA [None]
  - EXTRAPYRAMIDAL DISORDER [None]
  - GENERAL PHYSICAL HEALTH DETERIORATION [None]
  - IMPAIRED SELF-CARE [None]
  - LIVER FUNCTION TEST ABNORMAL [None]
  - MUSCLE RIGIDITY [None]
  - NEUROTOXICITY [None]
